FAERS Safety Report 23405035 (Version 1)
Quarter: 2024Q1

REPORT INFORMATION
  Report Type: Spontaneous
  Country: US (occurrence: US)
  Receive Date: 20240116
  Receipt Date: 20240116
  Transmission Date: 20240410
  Serious: Yes (Other)
  Sender: FDA-Public Use
  Company Number: US-BAYER-2024A004423

PATIENT
  Age: 61 Year
  Sex: Female

DRUGS (4)
  1. BETASERON [Suspect]
     Active Substance: INTERFERON BETA-1B
     Indication: Multiple sclerosis
     Dosage: WEEKS 1-2: 0.0625MG
     Route: 058
     Dates: start: 202311
  2. BETASERON [Suspect]
     Active Substance: INTERFERON BETA-1B
     Indication: Multiple sclerosis
     Dosage: WEEKS 3-4: 0.125MG (0.5ML)
  3. BETASERON [Suspect]
     Active Substance: INTERFERON BETA-1B
     Indication: Multiple sclerosis
     Dosage: UNKWEEKS 5-6: 0.1875MG (0.75ML)
  4. BETASERON [Suspect]
     Active Substance: INTERFERON BETA-1B
     Indication: Multiple sclerosis
     Dosage: WEEKS 7 ON: 0.25MG (1ML)

REACTIONS (3)
  - Multiple sclerosis relapse [None]
  - Multiple sclerosis [None]
  - Feeling cold [None]

NARRATIVE: CASE EVENT DATE: 20231201
